FAERS Safety Report 4298115-4 (Version None)
Quarter: 2004Q1

REPORT INFORMATION
  Report Type: 
  Country: None (occurrence: None)
  Receive Date: 20040218
  Receipt Date: 20021018
  Transmission Date: 20041129
  Serious: Yes (Other)
  Sender: FDA-Public Use
  Company Number: US-BRISTOL-MYERS SQUIBB COMPANY-12088621

PATIENT
  Age: 52 Year
  Sex: Male
  Weight: 76 kg

DRUGS (18)
  1. STADOL [Suspect]
     Indication: MIGRAINE
     Route: 045
     Dates: start: 19990101
  2. ROBAXIN [Suspect]
     Indication: MUSCLE SPASMS
     Dosage: NUMBER OF DOSAGES:  1 OR 2-4 TIMES DAILY.
  3. DEMEROL [Suspect]
     Indication: PAIN
     Dosage: DOSE VALUE:  25 MG/ML, 50 MG/ML, 75 MG/ML INJECTION
  4. PHENERGAN [Suspect]
     Dosage: DOSE VALUE:  25 MG TABLETS, 50 MG SUPPOSITORIES, OR 25 MG/ML AND 50 MG/ML INJECTION
  5. D.H.E. 45 [Suspect]
     Indication: HEADACHE
     Route: 030
  6. INDERAL LA [Suspect]
     Indication: MIGRAINE PROPHYLAXIS
     Dosage: 120 MG OR 160 MG CAPSULES
  7. AMBIEN [Suspect]
     Indication: SLEEP DISORDER
     Dosage: DOSE VALUE:  5 OR 10 MG TAKEN AT NIGHT
  8. ZANAFLEX [Concomitant]
  9. WELLBUTRIN [Concomitant]
  10. LORTAB [Concomitant]
  11. PROZAC [Concomitant]
  12. PERCODAN [Concomitant]
  13. ESGIC-PLUS [Concomitant]
  14. ORPHENGESIC [Concomitant]
  15. HYDROXYZINE PAMOATE [Concomitant]
  16. CODEINE + ACETAMINOPHEN [Concomitant]
  17. TRAZODONE HCL [Concomitant]
  18. CHLORZOXAZONE [Concomitant]

REACTIONS (7)
  - DEPENDENCE [None]
  - DEPENDENT PERSONALITY DISORDER [None]
  - DRUG ADDICT [None]
  - LOSS OF CONSCIOUSNESS [None]
  - MAJOR DEPRESSION [None]
  - OBSESSIVE-COMPULSIVE DISORDER [None]
  - PERSONALITY DISORDER [None]
